FAERS Safety Report 9205962 (Version 2)
Quarter: 2013Q2

REPORT INFORMATION
  Report Type: Spontaneous
  Country: AU (occurrence: AU)
  Receive Date: 20130403
  Receipt Date: 20130422
  Transmission Date: 20140414
  Serious: Yes (Hospitalization, Other)
  Sender: FDA-Public Use
  Company Number: AU-JNJFOC-20130318370

PATIENT
  Age: 35 Year
  Sex: Male
  Weight: 80 kg

DRUGS (4)
  1. REMICADE [Suspect]
     Indication: CROHN^S DISEASE
     Route: 042
     Dates: start: 20110223
  2. REMICADE [Suspect]
     Indication: CROHN^S DISEASE
     Dosage: INDUCTION DOSE FOLLOWED BY 8 WEEKLY MAINTAINANCE THERAPY
     Route: 042
     Dates: start: 201101
  3. IMURAN [Concomitant]
     Indication: PROCTITIS
     Route: 048
     Dates: start: 1995
  4. METRONIDAZOLE [Concomitant]
     Indication: PROCTITIS
     Route: 048
     Dates: start: 20110615

REACTIONS (6)
  - Pneumonia [Recovered/Resolved]
  - Proctitis [Recovering/Resolving]
  - Pyrexia [Recovered/Resolved]
  - Scar [Unknown]
  - Cough [Recovered/Resolved]
  - Antinuclear antibody positive [Unknown]
